FAERS Safety Report 9474682 (Version 1)
Quarter: 2013Q3

REPORT INFORMATION
  Report Type: Spontaneous
  Country: US (occurrence: US)
  Receive Date: 20130823
  Receipt Date: 20130823
  Transmission Date: 20140515
  Serious: Yes (Other)
  Sender: FDA-Public Use
  Company Number: ALCN2013US004331

PATIENT
  Age: 73 Year
  Sex: Male

DRUGS (2)
  1. PREDNISOLONE ACETATE [Suspect]
     Indication: POSTOPERATIVE CARE
     Dosage: 4 TO 6 TIMES DAILY
     Route: 047
  2. ANTIBIOTICS [Concomitant]
     Indication: POSTOPERATIVE CARE

REACTIONS (5)
  - Cystoid macular oedema [Not Recovered/Not Resolved]
  - Cataract [Not Recovered/Not Resolved]
  - Fibrosis [Unknown]
  - Astigmatism [Unknown]
  - Diplopia [Unknown]
